FAERS Safety Report 7794253-X (Version None)
Quarter: 2011Q4

REPORT INFORMATION
  Report Type: 
  Country: None (occurrence: None)
  Receive Date: 20111004
  Receipt Date: 20110926
  Transmission Date: 20120403
  Serious: Yes (Hospitalization)
  Sender: FDA-Public Use
  Company Number: US-ASTELLAS-2011US001424

PATIENT
  Sex: Female

DRUGS (4)
  1. TACROLIMUS [Suspect]
     Indication: DERMATITIS ATOPIC
     Dosage: 0.1 %, BID
     Route: 061
     Dates: start: 20030101
  2. CLOBETASOL PROPIONATE [Concomitant]
     Indication: DERMATITIS ATOPIC
     Dosage: BID PRN
     Route: 061
     Dates: start: 20030522
  3. TACROLIMUS [Suspect]
     Dosage: 0.1 %, UID/QD
     Route: 061
  4. MULTI-VITAMIN [Concomitant]
     Indication: PRODUCT USED FOR UNKNOWN INDICATION
     Dosage: UNK
     Route: 065

REACTIONS (3)
  - OFF LABEL USE [None]
  - ANXIETY DISORDER [None]
  - MAJOR DEPRESSION [None]
